FAERS Safety Report 4845360-2 (Version None)
Quarter: 2005Q4

REPORT INFORMATION
  Report Type: 
  Country: None (occurrence: None)
  Receive Date: 20051205
  Receipt Date: 20051202
  Transmission Date: 20060501
  Serious: Yes (Hospitalization)
  Sender: FDA-Public Use
  Company Number: IT-GLAXOSMITHKLINE-B0402614A

PATIENT
  Age: 53 Year
  Sex: Female

DRUGS (1)
  1. AUGMENTIN [Suspect]
     Dosage: 1G TWICE PER DAY
     Route: 048
     Dates: start: 20051118, end: 20051122

REACTIONS (1)
  - URTICARIA GENERALISED [None]
